FAERS Safety Report 4565225-3 (Version None)
Quarter: 2005Q1

REPORT INFORMATION
  Report Type: 
  Country: None (occurrence: None)
  Receive Date: 20050124
  Receipt Date: 20050107
  Transmission Date: 20050727
  Serious: Yes (Hospitalization, Other)
  Sender: FDA-Public Use
  Company Number: 601692

PATIENT
  Age: 7 Year
  Sex: Male
  Weight: 38 kg

DRUGS (7)
  1. FEIBA VH IMMUNO [Suspect]
     Indication: HAEMARTHROSIS
     Dosage: 2500 IU; PRN; INTRAVENOUS
     Route: 042
     Dates: start: 20020705, end: 20020705
  2. ANTIBIOTICS [Concomitant]
  3. GLUCOSE + NACL 0.9% [Concomitant]
  4. AMIKIN [Concomitant]
  5. AUGMENTIN [Concomitant]
  6. METRONIDAZOLE HCL [Concomitant]
  7. EXACYL [Concomitant]

REACTIONS (6)
  - ABDOMINAL WALL DISORDER [None]
  - ANAPHYLACTIC REACTION [None]
  - APPENDICITIS [None]
  - MUSCLE HAEMORRHAGE [None]
  - PERITONITIS [None]
  - TACHYCARDIA [None]
